FAERS Safety Report 7628663-8 (Version None)
Quarter: 2011Q3

REPORT INFORMATION
  Report Type: 
  Country: None (occurrence: None)
  Receive Date: 20110722
  Receipt Date: 20110711
  Transmission Date: 20111222
  Serious: Yes (Other)
  Sender: FDA-Public Use
  Company Number: US-UCBSA-036962

PATIENT
  Sex: Male

DRUGS (1)
  1. KEPPRA XR [Suspect]
     Dosage: STRENGTH: 750 MG

REACTIONS (1)
  - SHOULDER OPERATION [None]
